FAERS Safety Report 4806282-6 (Version None)
Quarter: 2005Q4

REPORT INFORMATION
  Report Type: 
  Country: None (occurrence: None)
  Receive Date: 20051021
  Receipt Date: 20050621
  Transmission Date: 20060501
  Serious: Yes (Death, Hospitalization)
  Sender: FDA-Public Use
  Company Number: US-MERCK-0506USA03194

PATIENT
  Age: 44 Year
  Sex: Male
  Weight: 84 kg

DRUGS (18)
  1. VIOXX [Suspect]
     Indication: ARTHRITIS
     Route: 048
     Dates: start: 20000208, end: 20031114
  2. VIOXX [Suspect]
     Indication: EXOSTOSIS
     Route: 048
     Dates: start: 20000208, end: 20031114
  3. COREG [Concomitant]
     Indication: HYPERTENSION
     Route: 065
     Dates: start: 20001219, end: 20031114
  4. BEXTRA [Concomitant]
     Indication: ARTHRALGIA
     Route: 065
     Dates: start: 20020628, end: 20031114
  5. LANOXIN [Concomitant]
     Indication: HYPERTENSION
     Route: 065
     Dates: start: 20001219, end: 20031114
  6. PLAVIX [Concomitant]
     Indication: ANTIPLATELET THERAPY
     Route: 065
     Dates: start: 20001219, end: 20031114
  7. PLAVIX [Concomitant]
     Indication: CATHETERISATION CARDIAC
     Route: 065
     Dates: start: 20001219, end: 20031114
  8. SPIRONOLACTONE [Concomitant]
     Indication: HYPERTENSION
     Route: 065
     Dates: start: 20001219, end: 20031114
  9. ZOCOR [Concomitant]
     Indication: BLOOD CHOLESTEROL INCREASED
     Route: 065
     Dates: start: 20001219, end: 20031114
  10. INDOCIN [Concomitant]
     Indication: ARTHRALGIA
     Route: 065
     Dates: start: 20000314, end: 20031114
  11. ISOSORBIDE MONONITRATE [Concomitant]
     Route: 065
     Dates: start: 20001219, end: 20010420
  12. CARDIZEM [Concomitant]
     Route: 065
     Dates: start: 20000930, end: 20020226
  13. DEMADEX [Concomitant]
     Route: 065
     Dates: start: 20010809, end: 20020823
  14. FUROSEMIDE [Concomitant]
     Route: 065
     Dates: start: 20001209, end: 20010320
  15. ASPIRIN [Concomitant]
     Route: 065
     Dates: start: 19920324, end: 20031114
  16. ACCUPRIL [Concomitant]
     Route: 065
     Dates: start: 19980703, end: 20011219
  17. OXYCONTIN [Concomitant]
     Route: 065
     Dates: start: 20000314, end: 20030228
  18. RELAFEN [Concomitant]
     Route: 065
     Dates: start: 20000606, end: 20000806

REACTIONS (16)
  - ACUTE CORONARY SYNDROME [None]
  - ANGINA PECTORIS [None]
  - ARTERIOSCLEROSIS [None]
  - CARDIAC FAILURE CONGESTIVE [None]
  - CARDIO-RESPIRATORY ARREST [None]
  - CARDIOMEGALY [None]
  - COLONIC POLYP [None]
  - CORONARY ARTERY DISEASE [None]
  - CORONARY ARTERY OCCLUSION [None]
  - CORONARY ARTERY STENOSIS [None]
  - GASTROOESOPHAGEAL REFLUX DISEASE [None]
  - HAEMORRHOIDS [None]
  - MYOCARDIAL INFARCTION [None]
  - PROCTITIS [None]
  - RECTAL HAEMORRHAGE [None]
  - VENTRICULAR TACHYCARDIA [None]
